FAERS Safety Report 7781970-0 (Version None)
Quarter: 2011Q3

REPORT INFORMATION
  Report Type: 
  Country: None (occurrence: None)
  Receive Date: 20110927
  Receipt Date: 20110912
  Transmission Date: 20111222
  Serious: Yes (Other)
  Sender: FDA-Public Use
  Company Number: PHEH2011US04056

PATIENT
  Sex: Male

DRUGS (9)
  1. DIOVAN [Suspect]
     Dosage: 1 DF, QD (80 MG)
  2. LANSOPRAZOLE [Suspect]
     Dosage: 1 DF, BID (ONE IN THE MORNING AND ONE AT NIGHT)
  3. DIOVAN [Suspect]
     Dosage: 2 DF, QD (80 MG)
  4. WARFARIN SODIUM [Concomitant]
     Dosage: 5 MG (ONE FULL PILL EVERY OTHER DAY AND IN BETWEEN THOSE DAYS A HALF OF A PILL)
  5. MULTI-VITAMINS [Concomitant]
  6. LANSOPRAZOLE [Suspect]
     Dosage: 1 DF, QD (30 MG)
  7. DIOVAN [Suspect]
     Dosage: 1 DF, QD (160 MG)
  8. ZOCOR [Concomitant]
     Dosage: 1 DF, QD (10 MG)
  9. PREVACID [Concomitant]

REACTIONS (3)
  - HYPERTENSION [None]
  - CEREBROVASCULAR ACCIDENT [None]
  - DRUG INEFFECTIVE [None]
